FAERS Safety Report 16133799 (Version 1)
Quarter: 2019Q1

REPORT INFORMATION
  Report Type: Spontaneous
  Country: FR (occurrence: FR)
  Receive Date: 20190329
  Receipt Date: 20190329
  Transmission Date: 20190418
  Serious: Yes (Hospitalization)
  Sender: FDA-Public Use
  Company Number: FR-TEVA-2019-FR-1029429

PATIENT
  Age: 64 Year
  Sex: Female
  Weight: 82 kg

DRUGS (4)
  1. CEFTRIAXONE BASE [Suspect]
     Active Substance: CEFTRIAXONE
     Indication: PYREXIA
     Dosage: 1 GRAM DAILY;
     Route: 042
     Dates: start: 20190209, end: 20190210
  2. PARACETAMOL [Suspect]
     Active Substance: ACETAMINOPHEN
     Indication: PYREXIA
     Dosage: 3 GRAM DAILY;
     Route: 042
     Dates: start: 20190209, end: 20190212
  3. ORBENINE [Suspect]
     Active Substance: CLOXACILLIN SODIUM
     Indication: PYREXIA
     Route: 042
     Dates: start: 20190210, end: 20190212
  4. VANCOMYCINE [Suspect]
     Active Substance: VANCOMYCIN
     Indication: PYREXIA
     Dosage: 2000 MILLIGRAM DAILY;
     Route: 042
     Dates: start: 20190209, end: 20190210

REACTIONS (2)
  - Hepatitis [Recovering/Resolving]
  - Cholestasis [Recovering/Resolving]

NARRATIVE: CASE EVENT DATE: 20190212
